FAERS Safety Report 7322222-2 (Version None)
Quarter: 2011Q1

REPORT INFORMATION
  Report Type: 
  Country: None (occurrence: None)
  Receive Date: 20110301
  Receipt Date: 20110217
  Transmission Date: 20110831
  Serious: Yes (Other)
  Sender: FDA-Public Use
  Company Number: US-BIOGENIDEC-2010BI041136

PATIENT
  Sex: Female

DRUGS (1)
  1. TYSABRI [Suspect]
     Indication: MULTIPLE SCLEROSIS
     Route: 042
     Dates: start: 20101025, end: 20101207

REACTIONS (7)
  - HEADACHE [None]
  - SARCOIDOSIS [None]
  - WHITE BLOOD CELL COUNT INCREASED [None]
  - LYMPHADENOPATHY [None]
  - CYST [None]
  - GAIT DISTURBANCE [None]
  - ANGIOTENSIN CONVERTING ENZYME INCREASED [None]
